FAERS Safety Report 18386535 (Version 1)
Quarter: 2020Q4

REPORT INFORMATION
  Report Type: Spontaneous
  Country: ES (occurrence: ES)
  Receive Date: 20201015
  Receipt Date: 20201015
  Transmission Date: 20210114
  Serious: Yes (Life-Threatening)
  Sender: FDA-Public Use
  Company Number: ES-CELLTRION-2020-ES-000133

PATIENT
  Age: 38 Year
  Sex: Male

DRUGS (1)
  1. LAMOTRIGINE (NON-SPECIFIC) [Suspect]
     Active Substance: LAMOTRIGINE
     Indication: LOSS OF CONSCIOUSNESS
     Dosage: 150 MG EVERY 12 HOURS

REACTIONS (3)
  - Toxicity to various agents [Unknown]
  - Metabolic encephalopathy [Unknown]
  - Suicide attempt [Unknown]
